FAERS Safety Report 4858649-8 (Version None)
Quarter: 2005Q4

REPORT INFORMATION
  Report Type: 
  Country: None (occurrence: None)
  Receive Date: 20051219
  Receipt Date: 20051013
  Transmission Date: 20060501
  Serious: No
  Sender: FDA-Public Use
  Company Number: US-GLAXOSMITHKLINE-A0578107A

PATIENT
  Age: 37 Year
  Sex: Female

DRUGS (2)
  1. NICODERM CQ [Suspect]
     Dates: start: 20051001, end: 20051012
  2. NICODERM CQ [Suspect]

REACTIONS (7)
  - GENITAL RASH [None]
  - HEADACHE [None]
  - MIGRAINE [None]
  - PRURITUS [None]
  - RASH [None]
  - SWELLING [None]
  - URTICARIA [None]
